APPROVED DRUG PRODUCT: BACLOFEN
Active Ingredient: BACLOFEN
Strength: 20MG
Dosage Form/Route: TABLET;ORAL
Application: A072825 | Product #001
Applicant: WATSON LABORATORIES INC
Approved: Sep 18, 1991 | RLD: No | RS: No | Type: DISCN